FAERS Safety Report 15568315 (Version 2)
Quarter: 2018Q4

REPORT INFORMATION
  Report Type: Spontaneous
  Country: US (occurrence: US)
  Receive Date: 20181031
  Receipt Date: 20181121
  Transmission Date: 20190205
  Serious: No
  Sender: FDA-Public Use
  Company Number: US-ASTRAZENECA-2018SF29325

PATIENT
  Age: 27457 Day
  Sex: Female
  Weight: 61.2 kg

DRUGS (3)
  1. SPIRVIA [Concomitant]
     Indication: DYSPNOEA
     Dosage: 2.5 MCG PER ACTUATION, TWO PUFFS IN THE MORNING
     Route: 055
  2. ALBUTEROL SULFATE. [Concomitant]
     Active Substance: ALBUTEROL SULFATE
     Indication: DYSPNOEA
     Dosage: 2.5 MG/3 ML, IN THE NEBULIZER, UP TO 4 TIMES A DAY (ONE TIME A DAY NOW AND SOMETIMES TWO TIMES A ...
     Route: 055
  3. SYMBICORT [Suspect]
     Active Substance: BUDESONIDE\FORMOTEROL FUMARATE DIHYDRATE
     Indication: DYSPNOEA
     Dosage: 160/4.5, TWO PUFFS IN THE MORNING AND TWO PUFFS AT NIGHT
     Route: 055

REACTIONS (12)
  - Chronic obstructive pulmonary disease [Unknown]
  - Memory impairment [Unknown]
  - Influenza [Unknown]
  - Visual acuity reduced [Unknown]
  - Underdose [Unknown]
  - Device failure [Unknown]
  - Intentional product misuse [Unknown]
  - Nasopharyngitis [Unknown]
  - Product dose omission [Unknown]
  - Off label use [Unknown]
  - Wrong technique in device usage process [Unknown]
  - Device malfunction [Unknown]

NARRATIVE: CASE EVENT DATE: 20180928
